FAERS Safety Report 7621670-0 (Version None)
Quarter: 2011Q3

REPORT INFORMATION
  Report Type: 
  Country: None (occurrence: None)
  Receive Date: 20110719
  Receipt Date: 20110711
  Transmission Date: 20111222
  Serious: Yes (Hospitalization)
  Sender: FDA-Public Use
  Company Number: IT-ASTRAZENECA-2011SE41573

PATIENT
  Age: 27827 Day
  Sex: Male

DRUGS (8)
  1. ENALAPRIL MALEATE [Suspect]
     Indication: HYPERTENSION
     Route: 048
     Dates: start: 20080101, end: 20110306
  2. COUMADIN [Concomitant]
     Indication: ATRIAL FIBRILLATION
     Route: 048
  3. SEROQUEL [Suspect]
     Indication: COGNITIVE DISORDER
     Route: 048
     Dates: start: 20110305, end: 20110306
  4. CARVEDILOL [Suspect]
     Route: 048
  5. PREDNISONE [Concomitant]
     Indication: PEMPHIGUS
  6. EUTIROXV [Concomitant]
     Indication: HYPOTHYROIDISM
  7. CARVEDILOL [Suspect]
     Indication: HYPERTENSION
     Route: 048
     Dates: start: 20080101, end: 20110306
  8. CORDARONE [Concomitant]

REACTIONS (2)
  - SOPOR [None]
  - HYPOTENSION [None]
